FAERS Safety Report 9164887 (Version 1)
Quarter: 2013Q1

REPORT INFORMATION
  Report Type: Spontaneous
  Country: TW (occurrence: None)
  Receive Date: 20130222
  Receipt Date: 20130222
  Transmission Date: 20140127
  Serious: Yes (Hospitalization)
  Sender: FDA-Public Use
  Company Number: B0868470A

PATIENT
  Age: 32 Year
  Sex: Female

DRUGS (2)
  1. LAMOTRIGINE [Suspect]
     Indication: EPILEPSY
  2. VALPROIC ACID [Concomitant]

REACTIONS (3)
  - Drug reaction with eosinophilia and systemic symptoms [None]
  - Jaundice [None]
  - Inhibitory drug interaction [None]
